FAERS Safety Report 7258478-4 (Version None)
Quarter: 2011Q1

REPORT INFORMATION
  Report Type: 
  Country: None (occurrence: None)
  Receive Date: 20110129
  Receipt Date: 20100817
  Transmission Date: 20110831
  Serious: No
  Sender: FDA-Public Use
  Company Number: US-ABBOTT-10P-163-0665407-00

PATIENT
  Sex: Male
  Weight: 76.272 kg

DRUGS (10)
  1. LEFLUNOMIDE [Concomitant]
     Indication: PSORIATIC ARTHROPATHY
  2. MAGIC MOUTH RINSE [Concomitant]
     Indication: PSORIASIS
  3. HYDROCODONE [Concomitant]
  4. ALPRAZOLAM [Concomitant]
     Indication: ANXIETY
  5. SERTRALINE HYDROCHLORIDE [Concomitant]
     Indication: ANXIETY
  6. HUMIRA [Suspect]
     Indication: PSORIASIS
  7. HUMIRA [Suspect]
     Indication: PSORIATIC ARTHROPATHY
     Dates: start: 20100803
  8. CLOBETASOL PROPIONATE [Concomitant]
     Indication: PSORIASIS
  9. DESONIDE [Concomitant]
     Indication: PSORIATIC ARTHROPATHY
  10. VECTICAL OINTMENT [Concomitant]
     Indication: PSORIASIS

REACTIONS (8)
  - FATIGUE [None]
  - TEMPERATURE INTOLERANCE [None]
  - MOTION SICKNESS [None]
  - MOOD SWINGS [None]
  - ANXIETY [None]
  - DIZZINESS [None]
  - DEVICE MALFUNCTION [None]
  - DIARRHOEA [None]
